FAERS Safety Report 9405149 (Version 1)
Quarter: 2013Q3

REPORT INFORMATION
  Report Type: Spontaneous
  Country: FR (occurrence: FR)
  Receive Date: 20130717
  Receipt Date: 20130717
  Transmission Date: 20140515
  Serious: Yes (Hospitalization, Congenital Anomaly, Other)
  Sender: FDA-Public Use
  Company Number: FR-PFIZER INC-2013205644

PATIENT
  Sex: Male
  Weight: 3 kg

DRUGS (3)
  1. XANAX [Suspect]
     Indication: DEPRESSION
     Dosage: 4 DF (2MG) PER DAY
     Route: 064
  2. PROZAC [Suspect]
     Indication: DEPRESSION
     Dosage: 20 MG IN THE MORNING AND AT LUNCH
     Route: 064
  3. NORMISON [Suspect]
     Indication: DEPRESSION
     Dosage: 20MG AT BEDTIME
     Route: 064

REACTIONS (3)
  - Maternal exposure during pregnancy [Recovered/Resolved with Sequelae]
  - Congenital megacolon [Recovered/Resolved with Sequelae]
  - Foetal heart rate abnormal [Unknown]
